FAERS Safety Report 5589081-X (Version None)
Quarter: 2007Q4

REPORT INFORMATION
  Report Type: 
  Country: None (occurrence: None)
  Receive Date: 20071212
  Receipt Date: 20070516
  Transmission Date: 20080405
  Serious: Yes (Life-Threatening, Hospitalization, Other)
  Sender: FDA-Public Use
  Company Number: USA-2007-0027401

PATIENT
  Age: 52 Year
  Sex: Female

DRUGS (9)
  1. OXYCONTIN [Suspect]
     Indication: ARTHRALGIA
     Dosage: 40 MG, Q8H, ORAL
     Route: 048
  2. OLMESARTAN MEDOXOMIL [Concomitant]
  3. HYDROCHLORZIDE [Concomitant]
  4. POTASSIUM CHLORIDE [Concomitant]
  5. CLINDAMYCIN HCL [Concomitant]
  6. COUMADIN [Concomitant]
  7. PROTONIX [Concomitant]
  8. ANALGESICS [Concomitant]
  9. MEDROL [Concomitant]

REACTIONS (17)
  - ANAEMIA POSTOPERATIVE [None]
  - HYPERKALAEMIA [None]
  - HYPOKALAEMIA [None]
  - HYPONATRAEMIA [None]
  - HYPOXIA [None]
  - LEUKOCYTOSIS [None]
  - OCCULT BLOOD POSITIVE [None]
  - OEDEMA PERIPHERAL [None]
  - OVERDOSE [None]
  - PROCEDURAL PAIN [None]
  - PRURITUS [None]
  - RASH ERYTHEMATOUS [None]
  - RESPIRATORY ARREST [None]
  - RESPIRATORY DEPRESSION [None]
  - RESPIRATORY FAILURE [None]
  - SOMNOLENCE [None]
  - WHITE BLOOD CELL COUNT INCREASED [None]
